FAERS Safety Report 9113746 (Version 1)
Quarter: 2013Q1

REPORT INFORMATION
  Report Type: Spontaneous
  Country: US (occurrence: US)
  Receive Date: 20130131
  Receipt Date: 20130131
  Transmission Date: 20140127
  Serious: No
  Sender: FDA-Public Use
  Company Number: US-009507513-1301USA010616

PATIENT
  Age: 26 Year
  Sex: Female
  Weight: 124.72 kg

DRUGS (3)
  1. IMPLANON [Suspect]
     Indication: CONTRACEPTION
     Dosage: IMPLANT LEFT ARM
     Dates: start: 20110715
  2. ZYRTEC [Concomitant]
  3. SINGULAIR [Concomitant]
     Dosage: 1 DF, QD

REACTIONS (1)
  - Metrorrhagia [Unknown]
